FAERS Safety Report 4788250-6 (Version None)
Quarter: 2005Q4

REPORT INFORMATION
  Report Type: 
  Country: None (occurrence: None)
  Receive Date: 20051003
  Receipt Date: 20050920
  Transmission Date: 20060501
  Serious: Yes (Other)
  Sender: FDA-Public Use
  Company Number: 2002057778

PATIENT
  Age: 68 Year
  Sex: Female

DRUGS (3)
  1. NORVASC [Suspect]
     Indication: HYPERTENSION
     Dosage: SEE IMAGE
     Route: 048
     Dates: start: 20010101
  2. DIFLUCAN [Suspect]
     Indication: FUNGAL INFECTION
     Dosage: 1 IN 1 D, ORAL
     Route: 048
     Dates: start: 20020101, end: 20030125
  3. CIPROFLOXACIN [Suspect]
     Indication: CYSTITIS
     Dosage: ORAL
     Route: 048
     Dates: start: 20030101

REACTIONS (17)
  - BOREDOM [None]
  - CONDITION AGGRAVATED [None]
  - CYSTITIS [None]
  - DEPRESSION [None]
  - DRUG INEFFECTIVE [None]
  - FAMILY STRESS [None]
  - FATIGUE [None]
  - FUNGAL INFECTION [None]
  - GASTROINTESTINAL DISORDER [None]
  - HIATUS HERNIA [None]
  - HYPERTENSION [None]
  - INSOMNIA [None]
  - MALAISE [None]
  - PANCREATIC NEOPLASM [None]
  - PRURITUS [None]
  - REGURGITATION OF FOOD [None]
  - TREATMENT NONCOMPLIANCE [None]
